FAERS Safety Report 18945846 (Version 6)
Quarter: 2021Q3

REPORT INFORMATION
  Report Type: Report from Study
  Country: AR (occurrence: AR)
  Receive Date: 20210226
  Receipt Date: 20210702
  Transmission Date: 20211014
  Serious: Yes (Other)
  Sender: FDA-Public Use
  Company Number: AR-BRISTOL-MYERS SQUIBB COMPANY-BMS-2021-019353

PATIENT
  Age: 80 Year
  Sex: Male
  Weight: 63 kg

DRUGS (9)
  1. NOSTER [AMLODIPINE BESILATE;VALSARTAN] [Suspect]
     Active Substance: AMLODIPINE BESYLATE\VALSARTAN
     Indication: PRODUCT USED FOR UNKNOWN INDICATION
     Dosage: UNK, DAILY
     Route: 065
  2. EXFORGE [Suspect]
     Active Substance: AMLODIPINE BESYLATE\VALSARTAN
     Indication: PRODUCT USED FOR UNKNOWN INDICATION
     Dosage: UNK
     Route: 065
  3. ALPLAX [Suspect]
     Active Substance: ALPRAZOLAM
     Indication: CEREBROVASCULAR ACCIDENT PROPHYLAXIS
     Dosage: UNK, DAILY
     Route: 065
  4. APIXABAN [Suspect]
     Active Substance: APIXABAN
     Indication: CEREBROVASCULAR ACCIDENT PROPHYLAXIS
     Dosage: 5 MILLIGRAM
     Route: 065
     Dates: start: 20140601
  5. APIXABAN [Suspect]
     Active Substance: APIXABAN
     Dosage: 2.5 MILLIGRAM, BID
     Route: 065
     Dates: start: 201607
  6. ROSUVAST [Suspect]
     Active Substance: ROSUVASTATIN CALCIUM
     Indication: PRODUCT USED FOR UNKNOWN INDICATION
     Dosage: UNK, DAILY
     Route: 065
  7. PGB [Suspect]
     Active Substance: PREGABALIN
     Indication: PRODUCT USED FOR UNKNOWN INDICATION
     Dosage: UNK, DAILY
     Route: 065
  8. AMIODARONE [Suspect]
     Active Substance: AMIODARONE
     Indication: PRODUCT USED FOR UNKNOWN INDICATION
     Dosage: UNK,DAILY
     Route: 065
  9. ESCITALOPRAM OXALATE. [Suspect]
     Active Substance: ESCITALOPRAM OXALATE
     Indication: PRODUCT USED FOR UNKNOWN INDICATION
     Dosage: UNK, DAILY
     Route: 065

REACTIONS (21)
  - Renal impairment [Unknown]
  - Neutrophil count increased [Recovered/Resolved]
  - Monocyte count decreased [Recovered/Resolved]
  - Atrial fibrillation [Unknown]
  - Blood creatinine increased [Unknown]
  - Neutrophil count decreased [Unknown]
  - Low density lipoprotein increased [Recovered/Resolved]
  - Activated partial thromboplastin time shortened [Recovered/Resolved]
  - Calcium ionised abnormal [Unknown]
  - Blood cholesterol increased [Recovered/Resolved]
  - Oedema peripheral [Unknown]
  - Blood urea increased [Unknown]
  - Platelet count decreased [Recovered/Resolved]
  - Eosinophil count increased [Recovered/Resolved]
  - Monocyte count increased [Recovered/Resolved]
  - Blood 25-hydroxycholecalciferol decreased [Unknown]
  - Glycosylated haemoglobin increased [Unknown]
  - Blood parathyroid hormone increased [Unknown]
  - Red blood cell count decreased [Recovered/Resolved]
  - Creatinine renal clearance decreased [Unknown]
  - Bilirubin conjugated increased [Recovered/Resolved]

NARRATIVE: CASE EVENT DATE: 201610
